FAERS Safety Report 17879848 (Version 1)
Quarter: 2020Q2

REPORT INFORMATION
  Report Type: Spontaneous
  Country: US (occurrence: US)
  Receive Date: 20200610
  Receipt Date: 20200610
  Transmission Date: 20200714
  Serious: Yes (Other)
  Sender: FDA-Public Use
  Company Number: None

PATIENT
  Sex: Female

DRUGS (2)
  1. ATRALIN [Suspect]
     Active Substance: TRETINOIN
  2. DIFFERIN [Suspect]
     Active Substance: ADAPALENE

REACTIONS (1)
  - Drug ineffective [None]
